FAERS Safety Report 7912587-2 (Version None)
Quarter: 2011Q4

REPORT INFORMATION
  Report Type: 
  Country: None (occurrence: None)
  Receive Date: 20111114
  Receipt Date: 20111102
  Transmission Date: 20120403
  Serious: Yes (Other)
  Sender: FDA-Public Use
  Company Number: US-GLAXOSMITHKLINE-A0952688A

PATIENT
  Age: 63 Year
  Sex: Male

DRUGS (1)
  1. COMMIT [Suspect]
     Route: 002

REACTIONS (2)
  - TOBACCO POISONING [None]
  - DRUG INEFFECTIVE [None]
